FAERS Safety Report 16035814 (Version 2)
Quarter: 2021Q1

REPORT INFORMATION
  Report Type: Spontaneous
  Country: US (occurrence: US)
  Receive Date: 20190305
  Receipt Date: 20210202
  Transmission Date: 20210419
  Serious: Yes (Hospitalization, Other)
  Sender: FDA-Public Use
  Company Number: US-TAKEDA-2019TUS011401

PATIENT
  Sex: Male

DRUGS (2)
  1. ICLUSIG [Suspect]
     Active Substance: PONATINIB
     Dosage: 30 MILLIGRAM, QD
     Route: 048
  2. ICLUSIG [Suspect]
     Active Substance: PONATINIB
     Indication: CHRONIC MYELOID LEUKAEMIA (IN REMISSION)
     Dosage: 45 MILLIGRAM, QD
     Route: 048

REACTIONS (4)
  - Dry skin [Unknown]
  - Rash pruritic [Unknown]
  - Memory impairment [Unknown]
  - Pneumonia [Unknown]
